FAERS Safety Report 5012532-6 (Version None)
Quarter: 2006Q2

REPORT INFORMATION
  Report Type: 
  Country: None (occurrence: None)
  Receive Date: 20060526
  Receipt Date: 20060524
  Transmission Date: 20061013
  Serious: Yes (Hospitalization)
  Sender: FDA-Public Use
  Company Number: BE-MERCK-0605BEL00025

PATIENT
  Age: 80 Year

DRUGS (2)
  1. SINGULAIR [Suspect]
     Indication: ASTHMA
     Route: 048
  2. ACENOCOUMAROL [Concomitant]
     Route: 048

REACTIONS (1)
  - PANCYTOPENIA [None]
